FAERS Safety Report 9031249 (Version 1)
Quarter: 2013Q1

REPORT INFORMATION
  Report Type: Spontaneous
  Country: DE (occurrence: DE)
  Receive Date: 20130123
  Receipt Date: 20130123
  Transmission Date: 20140127
  Serious: Yes (Other)
  Sender: FDA-Public Use
  Company Number: DE-BAUSCH-BL-2013-000161

PATIENT
  Age: 90 Year
  Sex: Female

DRUGS (2)
  1. BRIMONIDINE [Suspect]
     Indication: GLAUCOMA
     Route: 047
  2. NITROLINGUAL SPRAY [Suspect]
     Indication: PRODUCT USED FOR UNKNOWN INDICATION
     Dosage: AS NEEDED

REACTIONS (1)
  - Blindness transient [Recovered/Resolved]
